FAERS Safety Report 10219994 (Version 1)
Quarter: 2014Q2

REPORT INFORMATION
  Report Type: Spontaneous
  Country: KR (occurrence: KR)
  Receive Date: 20140605
  Receipt Date: 20140605
  Transmission Date: 20141212
  Serious: Yes (Other)
  Sender: FDA-Public Use
  Company Number: KR-PFIZER INC-2014151822

PATIENT
  Age: 7 Year
  Sex: 0
  Weight: 21.5 kg

DRUGS (1)
  1. ZITHROMAX [Suspect]
     Indication: LUNG DISORDER
     Dosage: 7 ML (7 CC), UNK
     Route: 048
     Dates: start: 20140530

REACTIONS (4)
  - Hypothermia [Recovered/Resolved]
  - Off label use [Unknown]
  - Pruritus [Recovered/Resolved]
  - Urticaria [Recovered/Resolved]
